FAERS Safety Report 18737387 (Version 6)
Quarter: 2021Q2

REPORT INFORMATION
  Report Type: Spontaneous
  Country: JP (occurrence: JP)
  Receive Date: 20210113
  Receipt Date: 20210406
  Transmission Date: 20210717
  Serious: Yes (Life-Threatening, Disabling, Other)
  Sender: FDA-Public Use
  Company Number: JP-PFIZER INC-2020501281

PATIENT
  Age: 61 Year
  Sex: Female
  Weight: 58.7 kg

DRUGS (3)
  1. KEYTRUDA [Suspect]
     Active Substance: PEMBROLIZUMAB
     Indication: RENAL CELL CARCINOMA
     Dosage: 200 MG, WEEKLY
     Route: 041
     Dates: start: 20201016, end: 20201127
  2. INLYTA [Suspect]
     Active Substance: AXITINIB
     Dosage: 10 MG, DAILY
     Route: 048
     Dates: start: 20201225, end: 20210104
  3. INLYTA [Suspect]
     Active Substance: AXITINIB
     Indication: RENAL CELL CARCINOMA
     Dosage: 10 MG, 2X/DAY (IN THE MORNING AND THE EVENING)
     Route: 048
     Dates: start: 20201016, end: 20201127

REACTIONS (9)
  - Headache [Recovered/Resolved]
  - Malaise [Recovered/Resolved]
  - Nausea [Recovered/Resolved]
  - Hypothyroidism [Not Recovered/Not Resolved]
  - Back pain [Recovered/Resolved]
  - Liver disorder [Recovered/Resolved]
  - Thyroiditis [Recovered/Resolved with Sequelae]
  - Abdominal pain [Recovered/Resolved]
  - Abdominal pain upper [Recovered/Resolved]

NARRATIVE: CASE EVENT DATE: 20201106
